FAERS Safety Report 18110350 (Version 2)
Quarter: 2020Q3

REPORT INFORMATION
  Report Type: Spontaneous
  Country: AU (occurrence: AU)
  Receive Date: 20200804
  Receipt Date: 20200922
  Transmission Date: 20201103
  Serious: No
  Sender: FDA-Public Use
  Company Number: AU-TOLMAR, INC.-20AU022204

PATIENT
  Sex: Male

DRUGS (2)
  1. ELIGARD [Suspect]
     Active Substance: LEUPROLIDE ACETATE
     Indication: PRODUCT USED FOR UNKNOWN INDICATION
     Dosage: 45 MG, Q 6 MONTH
     Route: 065
     Dates: start: 20200729
  2. ELIGARD [Suspect]
     Active Substance: LEUPROLIDE ACETATE
     Dosage: 45 MG, Q 6 MONTH
     Route: 065

REACTIONS (4)
  - Wrong technique in device usage process [Unknown]
  - Intercepted product preparation error [Unknown]
  - Device leakage [Unknown]
  - Syringe issue [Unknown]

NARRATIVE: CASE EVENT DATE: 20200729
